FAERS Safety Report 17311520 (Version 1)
Quarter: 2020Q1

REPORT INFORMATION
  Report Type: Spontaneous
  Country: US (occurrence: US)
  Receive Date: 20200123
  Receipt Date: 20200123
  Transmission Date: 20200409
  Serious: No
  Sender: FDA-Public Use
  Company Number: US-ROCHE-2244796

PATIENT
  Age: 47 Year
  Sex: Female
  Weight: 74 kg

DRUGS (4)
  1. RITUXAN [Suspect]
     Active Substance: RITUXIMAB
     Indication: ENCEPHALITIS AUTOIMMUNE
     Dosage: 375 MG PER METER SQUARE 4 DOSES TOTAL; ONGOING: NO
     Route: 065
     Dates: start: 20180630
  2. RITUXAN [Suspect]
     Active Substance: RITUXIMAB
     Indication: PARANEOPLASTIC SYNDROME
     Route: 065
     Dates: start: 20180707
  3. RITUXAN [Suspect]
     Active Substance: RITUXIMAB
     Indication: STIFF PERSON SYNDROME
     Route: 065
     Dates: start: 20180714
  4. RITUXAN [Suspect]
     Active Substance: RITUXIMAB
     Indication: AUTOIMMUNE DISORDER
     Route: 065
     Dates: start: 20180720

REACTIONS (3)
  - No adverse event [Unknown]
  - Off label use [Unknown]
  - Intentional product use issue [Unknown]

NARRATIVE: CASE EVENT DATE: 20180630
